FAERS Safety Report 9297799 (Version 1)
Quarter: 2013Q2

REPORT INFORMATION
  Report Type: Spontaneous
  Country: GT (occurrence: GT)
  Receive Date: 20130520
  Receipt Date: 20130520
  Transmission Date: 20140414
  Serious: Yes (Other)
  Sender: FDA-Public Use
  Company Number: PHHY2013GT032794

PATIENT
  Age: 55 Year
  Sex: Male

DRUGS (1)
  1. EXFORGE [Suspect]
     Indication: HYPERTENSION
     Dosage: 1 DF, (320/10 MG) QD
     Route: 048

REACTIONS (3)
  - Astigmatism [Recovered/Resolved]
  - Myopia [Recovering/Resolving]
  - Visual impairment [Unknown]
